FAERS Safety Report 4445068-1 (Version None)
Quarter: 2004Q3

REPORT INFORMATION
  Report Type: 
  Country: None (occurrence: None)
  Receive Date: 20040907
  Receipt Date: 20040825
  Transmission Date: 20050211
  Serious: Yes (Death, Hospitalization)
  Sender: FDA-Public Use
  Company Number: 2004060813

PATIENT

DRUGS (3)
  1. MAGNAMYCIN [Suspect]
     Indication: SEPSIS
     Dosage: UNKNOWN (UNK, 2 IN 1 D), INTRAVENOUS
     Route: 042
     Dates: start: 20040101
  2. PHYTONADIONE [Concomitant]
  3. GENTAMYCIN SULFATE [Concomitant]

REACTIONS (1)
  - PULMONARY HAEMORRHAGE [None]
